FAERS Safety Report 25478856 (Version 1)
Quarter: 2025Q2

REPORT INFORMATION
  Report Type: Spontaneous
  Country: FR (occurrence: FR)
  Receive Date: 20250625
  Receipt Date: 20250625
  Transmission Date: 20250716
  Serious: Yes (Other)
  Sender: MYLAN
  Company Number: None

PATIENT
  Age: 23 Year
  Sex: Female

DRUGS (8)
  1. TRAMADOL [Suspect]
     Active Substance: TRAMADOL
     Indication: Product used for unknown indication
     Dosage: 2250 MILLIGRAM, QD, 15 TABLETS OR 2250 MG TAKEN IN THE EVENING
     Dates: start: 20250516, end: 20250517
  2. TRAMADOL [Suspect]
     Active Substance: TRAMADOL
     Dosage: 2250 MILLIGRAM, QD, 15 TABLETS OR 2250 MG TAKEN IN THE EVENING
     Route: 048
     Dates: start: 20250516, end: 20250517
  3. TRAMADOL [Suspect]
     Active Substance: TRAMADOL
     Dosage: 2250 MILLIGRAM, QD, 15 TABLETS OR 2250 MG TAKEN IN THE EVENING
     Route: 048
     Dates: start: 20250516, end: 20250517
  4. TRAMADOL [Suspect]
     Active Substance: TRAMADOL
     Dosage: 2250 MILLIGRAM, QD, 15 TABLETS OR 2250 MG TAKEN IN THE EVENING
     Dates: start: 20250516, end: 20250517
  5. LAMALINE (ACETAMINOPHEN\CAFFEINE\OPIUM) [Suspect]
     Active Substance: ACETAMINOPHEN\CAFFEINE\OPIUM
     Indication: Product used for unknown indication
     Dosage: 10 DOSAGE FORM, QD, 10 CAPSULES TAKEN IN THE EVENING
     Dates: start: 20250516, end: 20250517
  6. LAMALINE (ACETAMINOPHEN\CAFFEINE\OPIUM) [Suspect]
     Active Substance: ACETAMINOPHEN\CAFFEINE\OPIUM
     Dosage: 10 DOSAGE FORM, QD, 10 CAPSULES TAKEN IN THE EVENING
     Route: 048
     Dates: start: 20250516, end: 20250517
  7. LAMALINE (ACETAMINOPHEN\CAFFEINE\OPIUM) [Suspect]
     Active Substance: ACETAMINOPHEN\CAFFEINE\OPIUM
     Dosage: 10 DOSAGE FORM, QD, 10 CAPSULES TAKEN IN THE EVENING
     Route: 048
     Dates: start: 20250516, end: 20250517
  8. LAMALINE (ACETAMINOPHEN\CAFFEINE\OPIUM) [Suspect]
     Active Substance: ACETAMINOPHEN\CAFFEINE\OPIUM
     Dosage: 10 DOSAGE FORM, QD, 10 CAPSULES TAKEN IN THE EVENING
     Dates: start: 20250516, end: 20250517

REACTIONS (1)
  - Drug use disorder [Unknown]
